FAERS Safety Report 4429676-X (Version None)
Quarter: 2004Q3

REPORT INFORMATION
  Report Type: 
  Country: None (occurrence: None)
  Receive Date: 20040819
  Receipt Date: 20040811
  Transmission Date: 20050211
  Serious: Yes (Other)
  Sender: FDA-Public Use
  Company Number: PHEH2004US08700

PATIENT
  Age: 71 Year
  Sex: Female

DRUGS (4)
  1. DIOVAN [Suspect]
     Dosage: 160 MG, QD
     Route: 048
     Dates: start: 20040809
  2. DIOVAN [Suspect]
     Dosage: 80 MG, QD
     Route: 048
     Dates: start: 20040807, end: 20040809
  3. ATENOLOL [Concomitant]
     Indication: HYPERTENSION
  4. DIGOXIN [Concomitant]
     Indication: ATRIAL FIBRILLATION

REACTIONS (2)
  - BLOOD PRESSURE INCREASED [None]
  - HEART RATE DECREASED [None]
